FAERS Safety Report 10687876 (Version 1)
Quarter: 2015Q1

REPORT INFORMATION
  Report Type: Spontaneous
  Country: FR (occurrence: FR)
  Receive Date: 20150102
  Receipt Date: 20150102
  Transmission Date: 20150720
  Serious: Yes (Hospitalization)
  Sender: FDA-Public Use
  Company Number: FR-JNJFOC-20141217544

PATIENT
  Age: 68 Year
  Sex: Male

DRUGS (5)
  1. AMOXICILLIN. [Suspect]
     Active Substance: AMOXICILLIN
     Indication: TONSILLITIS
     Route: 048
     Dates: start: 20141001, end: 20141015
  2. SOLUPRED [Suspect]
     Active Substance: PREDNISOLONE
     Indication: TONSILLITIS
     Route: 048
     Dates: start: 20141020, end: 20141023
  3. SOLUPRED [Suspect]
     Active Substance: PREDNISOLONE
     Indication: TONSILLITIS
     Route: 048
     Dates: start: 20141001
  4. CONTRAMAL [Suspect]
     Active Substance: TRAMADOL HYDROCHLORIDE
     Indication: HAEMORRHOIDS
     Route: 048
  5. DAFLON [Suspect]
     Active Substance: DIOSMIN\HESPERIDIN
     Indication: HAEMORRHOIDS
     Route: 048
     Dates: start: 20141020, end: 20141023

REACTIONS (1)
  - Febrile bone marrow aplasia [Recovered/Resolved]

NARRATIVE: CASE EVENT DATE: 20141028
